FAERS Safety Report 24177216 (Version 2)
Quarter: 2024Q3

REPORT INFORMATION
  Report Type: Report from Study
  Country: US (occurrence: US)
  Receive Date: 20240806
  Receipt Date: 20240930
  Transmission Date: 20241016
  Serious: No
  Sender: BIOVITRUM
  Company Number: US-BIOVITRUM-2024-US-010579

PATIENT
  Age: 46 Year
  Sex: Male

DRUGS (2)
  1. KINERET [Suspect]
     Active Substance: ANAKINRA
     Indication: Rheumatoid arthritis
     Dosage: DAILY
     Route: 058
     Dates: start: 20230323
  2. KINERET [Suspect]
     Active Substance: ANAKINRA
     Dosage: BID
     Route: 058
     Dates: start: 20230323

REACTIONS (4)
  - C-reactive protein increased [Unknown]
  - Drug ineffective [Unknown]
  - Joint swelling [Unknown]
  - Off label use [Not Recovered/Not Resolved]

NARRATIVE: CASE EVENT DATE: 20230323
